FAERS Safety Report 4910622-7 (Version None)
Quarter: 2006Q1

REPORT INFORMATION
  Report Type: 
  Country: None (occurrence: None)
  Receive Date: 20060214
  Receipt Date: 20060124
  Transmission Date: 20060701
  Serious: Yes (Death)
  Sender: FDA-Public Use
  Company Number: AU-BOEHRINGER INGELHEIM PHARMACEUTICALS, INC.-2006-BP-00814AU

PATIENT
  Age: 88 Year
  Sex: Male

DRUGS (2)
  1. MOBIC [Suspect]
     Route: 048
  2. CLOPIDOGREL BISULFATE [Concomitant]

REACTIONS (3)
  - DUODENAL ULCER [None]
  - DUODENAL ULCER HAEMORRHAGE [None]
  - HAEMORRHAGE [None]
